FAERS Safety Report 22624389 (Version 1)
Quarter: 2023Q2

REPORT INFORMATION
  Report Type: Spontaneous
  Country: US (occurrence: None)
  Receive Date: 20230619
  Receipt Date: 20230619
  Transmission Date: 20230721
  Serious: No
  Sender: FDA-Public Use
  Company Number: None

PATIENT
  Age: 71 Year
  Sex: 0
  Weight: 72.9 kg

DRUGS (1)
  1. TYMLOS [Suspect]
     Active Substance: ABALOPARATIDE
     Dosage: FREQUENCY : DAILY;?
     Route: 058

REACTIONS (6)
  - Nausea [None]
  - Dizziness [None]
  - Gait disturbance [None]
  - Vomiting [None]
  - Diarrhoea [None]
  - Injection related reaction [None]
